FAERS Safety Report 25026235 (Version 2)
Quarter: 2025Q3

REPORT INFORMATION
  Report Type: Spontaneous
  Country: US (occurrence: US)
  Receive Date: 20250301
  Receipt Date: 20250816
  Transmission Date: 20251020
  Serious: No
  Sender: ALEXION PHARMACEUTICALS
  Company Number: US-AstraZeneca-CH-00817403A

PATIENT
  Sex: Female

DRUGS (1)
  1. TEZSPIRE [Suspect]
     Active Substance: TEZEPELUMAB-EKKO
     Route: 065

REACTIONS (7)
  - Product use issue [Unknown]
  - Headache [Unknown]
  - Oropharyngeal pain [Unknown]
  - Back pain [Unknown]
  - Arthralgia [Unknown]
  - Joint injury [Unknown]
  - Dyspnoea [Unknown]
